FAERS Safety Report 11073858 (Version 2)
Quarter: 2015Q2

REPORT INFORMATION
  Report Type: Report from Study
  Country: CA (occurrence: CA)
  Receive Date: 20150428
  Receipt Date: 20150612
  Transmission Date: 20150821
  Serious: Yes (Other)
  Sender: FDA-Public Use
  Company Number: CA-AMGEN-CANSL2015038257

PATIENT
  Age: 67 Year
  Sex: Female

DRUGS (9)
  1. VITAMIN D [Concomitant]
     Active Substance: CHOLECALCIFEROL
  2. DEXILANT [Concomitant]
     Active Substance: DEXLANSOPRAZOLE
     Indication: HIATUS HERNIA
  3. FOLIC ACID. [Concomitant]
     Active Substance: FOLIC ACID
  4. THYROXIN [Concomitant]
     Active Substance: LEVOTHYROXINE
  5. LOSARTAN [Concomitant]
     Active Substance: LOSARTAN
  6. CALCIUM [Concomitant]
     Active Substance: CALCIUM
  7. ALPRAZOLAM. [Concomitant]
     Active Substance: ALPRAZOLAM
     Dosage: UNK UNK, QD
  8. PROLIA [Suspect]
     Active Substance: DENOSUMAB
     Indication: OSTEOPOROSIS POSTMENOPAUSAL
     Dosage: 60 MG, Q6MO
     Route: 058
     Dates: start: 201302
  9. WARFARIN [Concomitant]
     Active Substance: WARFARIN

REACTIONS (13)
  - Hiatus hernia [Unknown]
  - Skin exfoliation [Unknown]
  - Road traffic accident [Unknown]
  - Condition aggravated [Unknown]
  - Discomfort [Unknown]
  - Overweight [Unknown]
  - Psoriatic arthropathy [Unknown]
  - Drug effect incomplete [Unknown]
  - Rash [Recovering/Resolving]
  - Polymyalgia rheumatica [Unknown]
  - Skin fissures [Unknown]
  - Skin infection [Unknown]
  - Rib fracture [Unknown]

NARRATIVE: CASE EVENT DATE: 2013
